FAERS Safety Report 16186127 (Version 1)
Quarter: 2019Q2

REPORT INFORMATION
  Report Type: Spontaneous
  Country: PT (occurrence: PT)
  Receive Date: 20190411
  Receipt Date: 20190411
  Transmission Date: 20190711
  Serious: Yes (Other)
  Sender: FDA-Public Use
  Company Number: PT-PFIZER INC-2019153319

PATIENT
  Age: 62 Year
  Sex: Male

DRUGS (4)
  1. PENTOSTATIN. [Suspect]
     Active Substance: PENTOSTATIN
     Indication: CUTANEOUS T-CELL LYMPHOMA
     Dosage: 5 MG/M2, CYCLIC (ON DAYS 1-5)
     Route: 042
     Dates: start: 199710
  2. INTERFERON ALFA NOS [Concomitant]
     Active Substance: INTERFERON ALFA-2A OR INTERFERON ALFA-2B
     Indication: CUTANEOUS T-CELL LYMPHOMA
     Dosage: 3 MILLION IU, CYCLIC (3 TIMES WEEKLY FOR 1 WEEK)
     Route: 058
     Dates: start: 199710
  3. INTERFERON [Concomitant]
     Active Substance: INTERFERON
     Indication: CUTANEOUS T-CELL LYMPHOMA
     Dosage: 5 MILLION IU, CYCLIC (3 TIMES WEEKLY)
     Dates: start: 199710
  4. AMIFOSTINE. [Concomitant]
     Active Substance: AMIFOSTINE
     Indication: CUTANEOUS T-CELL LYMPHOMA
     Dosage: UNK, DAILY
     Dates: start: 199710

REACTIONS (2)
  - Haemolytic uraemic syndrome [Unknown]
  - Renal failure [Unknown]
